FAERS Safety Report 8914041 (Version 1)
Quarter: 2012Q4

REPORT INFORMATION
  Report Type: 
  Country: US (occurrence: US)
  Receive Date: 20121119
  Receipt Date: 20121119
  Transmission Date: 20130627
  Serious: No
  Sender: FDA-Public Use
  Company Number: US-009507513-1211USA005472

PATIENT
  Age: 49 None
  Sex: Female

DRUGS (2)
  1. PEGINTRON [Suspect]
     Indication: HEPATITIS C
     Dosage: UNK
     Dates: start: 20121109
  2. RIBAVIRIN [Suspect]
     Indication: HEPATITIS C
     Dosage: UNK
     Route: 048
     Dates: start: 20121109

REACTIONS (4)
  - Pollakiuria [Unknown]
  - Vomiting [Unknown]
  - Headache [Unknown]
  - Pyrexia [Unknown]
